FAERS Safety Report 9527940 (Version 3)
Quarter: 2014Q1

REPORT INFORMATION
  Report Type: Spontaneous
  Country: US (occurrence: US)
  Receive Date: 20130917
  Receipt Date: 20140128
  Transmission Date: 20141002
  Serious: No
  Sender: FDA-Public Use
  Company Number: US-009507513-1308USA014860

PATIENT
  Sex: Male

DRUGS (3)
  1. PEGINTRON [Suspect]
     Indication: HEPATITIS C
     Dosage: 0.5 ML, QW, REDIPEN
     Route: 058
     Dates: start: 20130812
  2. REBETOL [Suspect]
     Indication: HEPATITIS C
     Dosage: 3 PILLS, 600 MG, BID
     Route: 048
     Dates: start: 20130812
  3. INCIVEK [Suspect]
     Indication: HEPATITIS C
     Dosage: UNK
     Route: 048
     Dates: start: 20130819, end: 20131111

REACTIONS (7)
  - Pain [Unknown]
  - Fatigue [Unknown]
  - Pain [Unknown]
  - Fatigue [Unknown]
  - Nocturia [Unknown]
  - Dyspnoea [Unknown]
  - Weight decreased [Unknown]
